FAERS Safety Report 10156706 (Version 2)
Quarter: 2014Q2

REPORT INFORMATION
  Report Type: Spontaneous
  Country: US (occurrence: None)
  Receive Date: 20140505
  Receipt Date: 20140602
  Transmission Date: 20141212
  Serious: No
  Sender: FDA-Public Use
  Company Number: 2014-00063

PATIENT
  Age: 73 Year
  Sex: Female
  Weight: 171 kg

DRUGS (10)
  1. ZICAM ULTRA COLD REMEDY CRYSTALS [Suspect]
     Indication: NASOPHARYNGITIS
     Dosage: 1 DOSE EVERY 4 HOURS
     Dates: start: 20140422, end: 20140425
  2. DIGOXIN [Concomitant]
  3. ENALAPRIL [Concomitant]
  4. FUROSEMIDE [Concomitant]
  5. CRESTOR [Concomitant]
  6. COUMADIN [Concomitant]
  7. ACTNEL [Concomitant]
  8. POTASSIUM [Concomitant]
  9. CARVEDILOL [Concomitant]
  10. METFORMIN [Concomitant]

REACTIONS (4)
  - Paraesthesia oral [None]
  - Dysgeusia [None]
  - Ageusia [None]
  - Weight decreased [None]
